FAERS Safety Report 8213616-1 (Version None)
Quarter: 2012Q1

REPORT INFORMATION
  Report Type: 
  Country: None (occurrence: None)
  Receive Date: 20120315
  Receipt Date: 20040917
  Transmission Date: 20120608
  Serious: Yes (Death, Congenital Anomaly, Other)
  Sender: FDA-Public Use
  Company Number: JP-ASTRAZENECA-2004SE04506

PATIENT
  Age: 1 Day
  Weight: 1 kg

DRUGS (7)
  1. CANDESARTAN CILEXETIL [Suspect]
     Route: 064
     Dates: start: 20031104, end: 20040804
  2. DIPYRIDAMOLE [Concomitant]
     Route: 064
     Dates: start: 20040731, end: 20040804
  3. CANDESARTAN CILEXETIL [Suspect]
     Indication: GLOMERULONEPHRITIS CHRONIC
     Route: 064
     Dates: start: 20030902, end: 20031007
  4. FERROUS CITRATE [Concomitant]
     Indication: MINERAL SUPPLEMENTATION
     Route: 064
     Dates: start: 20030729, end: 20031007
  5. CANDESARTAN CILEXETIL [Suspect]
     Route: 064
     Dates: start: 20031008, end: 20031103
  6. FERROUS CITRATE [Concomitant]
     Route: 064
     Dates: start: 20031008, end: 20040804
  7. DIPYRIDAMOLE [Concomitant]
     Indication: GLOMERULONEPHRITIS CHRONIC
     Route: 064
     Dates: start: 20040625, end: 20040730

REACTIONS (7)
  - SKULL MALFORMATION [None]
  - LIMB MALFORMATION [None]
  - OLIGOHYDRAMNIOS [None]
  - NEONATAL RESPIRATORY ACIDOSIS [None]
  - PULMONARY HYPOPLASIA [None]
  - HYPERCAPNIA [None]
  - PNEUMOTHORAX [None]
